FAERS Safety Report 21591389 (Version 2)
Quarter: 2022Q4

REPORT INFORMATION
  Report Type: Spontaneous
  Country: FR (occurrence: FR)
  Receive Date: 20221114
  Receipt Date: 20221116
  Transmission Date: 20230112
  Serious: Yes (Death, Hospitalization)
  Sender: FDA-Public Use
  Company Number: FR-SCD-010302-01

PATIENT
  Age: 69 Year
  Sex: Male

DRUGS (1)
  1. METFORMIN [Suspect]
     Active Substance: METFORMIN HYDROCHLORIDE
     Indication: Type 2 diabetes mellitus
     Dosage: 1000 MG, TID
     Route: 065

REACTIONS (4)
  - Toxicity to various agents [Fatal]
  - Acute kidney injury [Unknown]
  - Acute hepatic failure [Unknown]
  - Lactic acidosis [Unknown]
